FAERS Safety Report 4810793-7 (Version None)
Quarter: 2005Q4

REPORT INFORMATION
  Report Type: 
  Country: None (occurrence: None)
  Receive Date: 20051024
  Receipt Date: 20051011
  Transmission Date: 20060501
  Serious: Yes (Other)
  Sender: FDA-Public Use
  Company Number: 2005141116

PATIENT
  Age: 30 Year
  Sex: Male
  Weight: 63.5036 kg

DRUGS (2)
  1. ROGAINE [Suspect]
     Indication: ALOPECIA
     Dosage: 1 ML 2 TIMES A DAY, TOPICAL
     Route: 061
     Dates: start: 20050101, end: 20051001
  2. BENADRYL [Suspect]
     Indication: RASH
     Dosage: 2 TABS Q4H, ORAL
     Route: 048
     Dates: start: 20051008, end: 20051010

REACTIONS (4)
  - BLINDNESS [None]
  - DRUG EFFECT DECREASED [None]
  - DRUG HYPERSENSITIVITY [None]
  - RASH [None]
